FAERS Safety Report 4271796-7 (Version None)
Quarter: 2004Q1

REPORT INFORMATION
  Report Type: 
  Country: None (occurrence: None)
  Receive Date: 20040115
  Receipt Date: 20040102
  Transmission Date: 20041129
  Serious: Yes (Hospitalization)
  Sender: FDA-Public Use
  Company Number: FR-GLAXOSMITHKLINE-B0318796A

PATIENT
  Age: 10 Year
  Sex: Male
  Weight: 28 kg

DRUGS (2)
  1. LAMICTAL [Suspect]
     Dosage: 15MG TWICE PER DAY
     Route: 048
     Dates: start: 20030711, end: 20031110
  2. DEPAKENE [Suspect]
     Dosage: 500MG TWICE PER DAY
     Route: 048
     Dates: start: 19950101, end: 20031112

REACTIONS (15)
  - ALANINE AMINOTRANSFERASE INCREASED [None]
  - ASPARTATE AMINOTRANSFERASE INCREASED [None]
  - COAGULATION FACTOR V LEVEL DECREASED [None]
  - COMA [None]
  - COMA HEPATIC [None]
  - CYTOLYTIC HEPATITIS [None]
  - DRUG LEVEL INCREASED [None]
  - HEPATIC FAILURE [None]
  - LEUKOCYTURIA [None]
  - NEUTROPHIL COUNT INCREASED [None]
  - PROTHROMBIN LEVEL DECREASED [None]
  - PYREXIA [None]
  - STATUS EPILEPTICUS [None]
  - URINARY TRACT INFECTION [None]
  - WHITE BLOOD CELL COUNT INCREASED [None]
